FAERS Safety Report 24874806 (Version 2)
Quarter: 2025Q3

REPORT INFORMATION
  Report Type: Report from Study
  Country: US (occurrence: US)
  Receive Date: 20250122
  Receipt Date: 20250803
  Transmission Date: 20251021
  Serious: Yes (Other)
  Sender: ALEXION PHARMACEUTICALS
  Company Number: US-AstraZeneca-CH-00784843A

PATIENT
  Sex: Female

DRUGS (1)
  1. BENRALIZUMAB [Suspect]
     Active Substance: BENRALIZUMAB
     Route: 065

REACTIONS (15)
  - Animal bite [Unknown]
  - Brain injury [Unknown]
  - Limb injury [Unknown]
  - Cardiac disorder [Unknown]
  - Lung disorder [Unknown]
  - Asthma [Unknown]
  - Illness [Unknown]
  - Back injury [Unknown]
  - Back pain [Unknown]
  - Ligament sprain [Unknown]
  - Muscular weakness [Unknown]
  - Confusional state [Unknown]
  - Lung disorder [Unknown]
  - Neck pain [Unknown]
  - Product dose omission issue [Unknown]
